FAERS Safety Report 7056755-3 (Version None)
Quarter: 2010Q4

REPORT INFORMATION
  Report Type: 
  Country: None (occurrence: None)
  Receive Date: 20101022
  Receipt Date: 20101013
  Transmission Date: 20110411
  Serious: Yes (Other)
  Sender: FDA-Public Use
  Company Number: US-BIOGENIDEC-2010BI033475

PATIENT
  Age: 53 Year
  Sex: Female

DRUGS (3)
  1. AVONEX [Suspect]
     Indication: MULTIPLE SCLEROSIS
     Route: 030
     Dates: start: 20000103, end: 20090105
  2. AVONEX [Suspect]
     Route: 030
     Dates: start: 20100727, end: 20100727
  3. AVONEX [Suspect]
     Route: 030
     Dates: end: 20100802

REACTIONS (9)
  - BENIGN NEOPLASM OF BLADDER [None]
  - CYSTITIS INTERSTITIAL [None]
  - GASTRIC HAEMORRHAGE [None]
  - INFECTION [None]
  - LEUKAEMIA [None]
  - MALAISE [None]
  - RAYNAUD'S PHENOMENON [None]
  - SJOGREN'S SYNDROME [None]
  - THROMBOCYTOPENIC PURPURA [None]
